FAERS Safety Report 5503615-2 (Version None)
Quarter: 2007Q4

REPORT INFORMATION
  Report Type: 
  Country: None (occurrence: None)
  Receive Date: 20071031
  Receipt Date: 20071025
  Transmission Date: 20080405
  Serious: Yes (Disabling)
  Sender: FDA-Public Use
  Company Number: 071001-0000970

PATIENT
  Age: 8 Year
  Sex: Female

DRUGS (3)
  1. DACTINOMYCIN [Suspect]
     Indication: PRIMITIVE NEUROECTODERMAL TUMOUR
     Dosage: IV
     Route: 042
     Dates: start: 19980401
  2. CISPLATIN [Suspect]
     Indication: PRIMITIVE NEUROECTODERMAL TUMOUR
     Dosage: IV
     Route: 042
     Dates: start: 19980401
  3. IV UNSPECIFIED (NO PREF. NAME) [Suspect]
     Indication: PRIMITIVE NEUROECTODERMAL TUMOUR
     Dosage: IV
     Route: 042
     Dates: start: 19980401

REACTIONS (12)
  - CONDITION AGGRAVATED [None]
  - DENTAL CARIES [None]
  - GINGIVAL DISORDER [None]
  - LOOSE TOOTH [None]
  - MICROGENIA [None]
  - QUALITY OF LIFE DECREASED [None]
  - TOOTH DEVELOPMENT DISORDER [None]
  - TOOTH DISORDER [None]
  - TOOTH EXTRACTION [None]
  - TOOTH HYPOPLASIA [None]
  - TOOTH LOSS [None]
  - TOOTH MALFORMATION [None]
